FAERS Safety Report 14778161 (Version 2)
Quarter: 2020Q1

REPORT INFORMATION
  Report Type: Spontaneous
  Country: GB (occurrence: GB)
  Receive Date: 20180419
  Receipt Date: 20200121
  Transmission Date: 20200409
  Serious: Yes (Hospitalization, Other)
  Sender: FDA-Public Use
  Company Number: PHHY2018GB066928

PATIENT
  Age: 51 Year
  Sex: Female

DRUGS (2)
  1. VERAPAMIL [Suspect]
     Active Substance: VERAPAMIL HYDROCHLORIDE
     Indication: HYPERTENSION
     Dosage: 120 MG, UNK (UNCLEAR HOW MANY TABLETS THE PATIENT HAS TAKEN IN RECENT DAYS)
     Route: 065
     Dates: start: 20171004
  2. BISOPROLOL [Suspect]
     Active Substance: BISOPROLOL
     Indication: HYPERTENSION
     Dosage: 10 MG, UNK
     Route: 065

REACTIONS (7)
  - Hepatic function abnormal [Unknown]
  - Cardiovascular disorder [Unknown]
  - Renal impairment [Unknown]
  - Shock [Unknown]
  - Accidental overdose [Unknown]
  - Product prescribing error [Unknown]
  - Cerebral disorder [Unknown]

NARRATIVE: CASE EVENT DATE: 20171006
